FAERS Safety Report 7902043-X (Version None)
Quarter: 2011Q4

REPORT INFORMATION
  Report Type: 
  Country: None (occurrence: None)
  Receive Date: 20111108
  Receipt Date: 20111029
  Transmission Date: 20120403
  Serious: Yes (Other)
  Sender: FDA-Public Use
  Company Number: US-GLAXOSMITHKLINE-A0952080A

PATIENT
  Age: 46 Year
  Sex: Male
  Weight: 108 kg

DRUGS (4)
  1. HEPARIN [Concomitant]
     Dosage: 5000UNIT TWICE PER DAY
     Dates: start: 20110913, end: 20110925
  2. HEPARIN [Concomitant]
     Dosage: 5000UNIT THREE TIMES PER DAY
     Dates: start: 20110925, end: 20111005
  3. ACTIVASE [Concomitant]
     Indication: CEREBROVASCULAR ACCIDENT
     Dates: start: 20110908
  4. ARIXTRA [Suspect]
     Dosage: 2.5MG PER DAY
     Route: 065
     Dates: start: 20111005

REACTIONS (2)
  - DEEP VEIN THROMBOSIS [None]
  - OEDEMA PERIPHERAL [None]
